FAERS Safety Report 12809409 (Version 3)
Quarter: 2017Q1

REPORT INFORMATION
  Report Type: Report from Study
  Country: CA (occurrence: CA)
  Receive Date: 20161005
  Receipt Date: 20170127
  Transmission Date: 20170428
  Serious: Yes (Hospitalization, Other)
  Sender: FDA-Public Use
  Company Number: CA-AMGEN-CANSL2016132849

PATIENT
  Age: 72 Year
  Sex: Female

DRUGS (7)
  1. PROLIA [Suspect]
     Active Substance: DENOSUMAB
     Indication: OSTEOPOROSIS
     Dosage: UNK
     Route: 065
     Dates: start: 20130307
  2. MAGNESIUM [Concomitant]
     Active Substance: MAGNESIUM
  3. VITAMIN D [Concomitant]
     Active Substance: CHOLECALCIFEROL
  4. SALOFALK [Concomitant]
     Active Substance: MESALAMINE
     Indication: COLITIS
  5. XARELTO [Concomitant]
     Active Substance: RIVAROXABAN
     Dosage: 10 MG, UNK
  6. CALCIUM [Concomitant]
     Active Substance: CALCIUM
     Dosage: UNK
  7. MULTIVITAMIN [Concomitant]
     Active Substance: VITAMINS
     Dosage: UNK

REACTIONS (10)
  - Abasia [Recovering/Resolving]
  - Pain [Unknown]
  - Weight decreased [Unknown]
  - Fungal infection [Unknown]
  - Osteoporotic fracture [Unknown]
  - Cystitis [Unknown]
  - Feeding disorder [Unknown]
  - Body height decreased [Unknown]
  - Bladder disorder [Unknown]
  - Infection [Unknown]

NARRATIVE: CASE EVENT DATE: 2015
